FAERS Safety Report 5584813-9 (Version None)
Quarter: 2008Q1

REPORT INFORMATION
  Report Type: 
  Country: None (occurrence: None)
  Receive Date: 20080104
  Receipt Date: 20071221
  Transmission Date: 20080703
  Serious: Yes (Other)
  Sender: FDA-Public Use
  Company Number: A0700411A

PATIENT
  Age: 59 Year
  Sex: Male
  Weight: 43.5 kg

DRUGS (1)
  1. ASPIRIN + CAFFEINE + SALICYLAMIDE POWDER (ASPIRIN+CAFFEINE+SALICYLA) [Suspect]
     Indication: PAIN
     Dosage: SEE DOSAGE TEXT/ORAL
     Route: 048

REACTIONS (7)
  - CERVICAL VERTEBRAL FRACTURE [None]
  - DEPENDENCE [None]
  - DRUG DEPENDENCE [None]
  - HEART RATE INCREASED [None]
  - PANIC ATTACK [None]
  - TINNITUS [None]
  - WEIGHT DECREASED [None]
